FAERS Safety Report 6380336-8 (Version None)
Quarter: 2009Q3

REPORT INFORMATION
  Report Type: 
  Country: None (occurrence: None)
  Receive Date: 20090929
  Receipt Date: 20090923
  Transmission Date: 20100115
  Serious: Yes (Hospitalization)
  Sender: FDA-Public Use
  Company Number: US-BAYER-200928353NA

PATIENT
  Age: 32 Year
  Sex: Female
  Weight: 97 kg

DRUGS (1)
  1. MIRENA [Suspect]
     Indication: CONTRACEPTION
     Dosage: CONTINUOUS
     Route: 015
     Dates: start: 20061228, end: 20090723

REACTIONS (3)
  - ANTEPARTUM HAEMORRHAGE [None]
  - ECTOPIC PREGNANCY [None]
  - PAIN [None]
